FAERS Safety Report 14296617 (Version 9)
Quarter: 2019Q1

REPORT INFORMATION
  Report Type: Report from Study
  Country: US (occurrence: US)
  Receive Date: 20171218
  Receipt Date: 20190104
  Transmission Date: 20190417
  Serious: Yes (Death, Hospitalization, Other)
  Sender: FDA-Public Use
  Company Number: US-TAKEDA-2017MPI011208

PATIENT
  Age: 69 Year
  Sex: Female

DRUGS (2)
  1. VELCADE [Suspect]
     Active Substance: BORTEZOMIB
     Indication: PLASMA CELL MYELOMA
     Dosage: UNK
     Route: 065
  2. IXAZOMIB [Suspect]
     Active Substance: IXAZOMIB
     Indication: PLASMA CELL MYELOMA
     Dosage: 4 MG, UNK
     Route: 048
     Dates: start: 20170919, end: 20171128

REACTIONS (17)
  - Death [Fatal]
  - Pneumonia [Not Recovered/Not Resolved]
  - Plasma cell myeloma [Unknown]
  - Asthenia [Unknown]
  - Eye disorder [Unknown]
  - Blood glucose increased [Unknown]
  - Memory impairment [Not Recovered/Not Resolved]
  - Dysstasia [Unknown]
  - Respiratory syncytial virus bronchitis [Unknown]
  - Pancreatic cyst [Unknown]
  - Dehydration [Unknown]
  - Malaise [Unknown]
  - Somnolence [Unknown]
  - Confusional state [Unknown]
  - Hyponatraemia [Unknown]
  - Drug ineffective [Unknown]
  - Fatigue [Unknown]

NARRATIVE: CASE EVENT DATE: 20181031
